FAERS Safety Report 25597389 (Version 2)
Quarter: 2025Q3

REPORT INFORMATION
  Report Type: Spontaneous
  Country: US (occurrence: US)
  Receive Date: 20250723
  Receipt Date: 20250908
  Transmission Date: 20251020
  Serious: No
  Sender: PFIZER
  Company Number: US-PFIZER INC-202500112681

PATIENT
  Age: 12 Year
  Sex: Male
  Weight: 47.63 kg

DRUGS (3)
  1. GENOTROPIN [Suspect]
     Active Substance: SOMATROPIN
     Indication: Hypopituitarism
     Dosage: ALTERNATE DOSE OF 1.2 MG AND 1.4 MG EVERY OTHER DAY FOR AN AVERAGE DAILY DOSE OF 1.3 MILLIGRAMS
     Dates: start: 202506
  2. GENOTROPIN [Suspect]
     Active Substance: SOMATROPIN
     Indication: Growth hormone deficiency
     Dosage: ALTERNATE DOSE OF 1.2 MG AND 1.4 MG EVERY OTHER DAY FOR AN AVERAGE DAILY DOSE OF 1.3 MILLIGRAMS
     Dates: start: 202506
  3. FASENRA [Concomitant]
     Active Substance: BENRALIZUMAB
     Indication: Asthma

REACTIONS (2)
  - Device leakage [Unknown]
  - Drug dose omission by device [Unknown]
